FAERS Safety Report 17661071 (Version 1)
Quarter: 2020Q2

REPORT INFORMATION
  Report Type: Spontaneous
  Country: ES (occurrence: ES)
  Receive Date: 20200413
  Receipt Date: 20200413
  Transmission Date: 20200713
  Serious: Yes (Other)
  Sender: FDA-Public Use
  Company Number: ES-TEVA-2020-ES-1222358

PATIENT
  Age: 75 Year
  Sex: Female
  Weight: 70 kg

DRUGS (1)
  1. CARBOPLATINO TEVA 10 MG/ML CONCENTRADO PARA SOLUCION PARA PERFUSION , [Suspect]
     Active Substance: CARBOPLATIN
     Dosage: 260MG
     Route: 041
     Dates: start: 20200324, end: 20200324

REACTIONS (1)
  - Infusion related reaction [Recovered/Resolved]

NARRATIVE: CASE EVENT DATE: 20200324
